FAERS Safety Report 22658790 (Version 1)
Quarter: 2023Q2

REPORT INFORMATION
  Report Type: Other
  Country: KR (occurrence: None)
  Receive Date: 20230630
  Receipt Date: 20230630
  Transmission Date: 20230721
  Serious: Yes (Other)
  Sender: FDA-Public Use
  Company Number: KR-ROCHE-1620189

PATIENT

DRUGS (13)
  1. RITUXIMAB [Suspect]
     Active Substance: RITUXIMAB
     Indication: Acute lymphocytic leukaemia
     Dosage: RITUXIMAB WAS ADMINISTERED ON DAY 8 OF INDUCTION AND CONSOLIDATION THERAPY (A AND B). FOR CONSOLIDAT
     Route: 042
  2. DAUNORUBICIN [Concomitant]
     Active Substance: DAUNORUBICIN
     Indication: Acute lymphocytic leukaemia
     Dosage: INDUCTION: OVER 24 HOURS ON DAYS 1-3 (45 MG/ M2/DAY ON DAYS 1-3 FOR PATIENTS }/= 65 YEARS OLD), IF B
     Route: 042
  3. DAUNORUBICIN [Concomitant]
     Active Substance: DAUNORUBICIN
     Dosage: CONSOLIDATION A (CYCLE 1): CONTINUOUS IV INFUSION OVER 24 HOURS ON DAYS 1, 2
     Route: 042
  4. VINCRISTINE [Concomitant]
     Active Substance: VINCRISTINE
     Indication: Acute lymphocytic leukaemia
     Dosage: DURING INDUCTION PHASE AND CONSOLIDATION A (CYCLE 1): IV PUSH ON DAYS 1, 8,
     Route: 042
  5. PREDNISOLONE [Concomitant]
     Active Substance: PREDNISOLONE
     Indication: Acute lymphocytic leukaemia
     Dosage: INDUCTION AND CONSOLIDATION A (CYCLE 1): ON DAYS 1-14
     Route: 048
  6. ASPARAGINASE [Concomitant]
     Active Substance: ASPARAGINASE
     Indication: Acute lymphocytic leukaemia
     Dosage: INDUCTION PHASE: 4,000 UNITS/M2/DAY, INTRAMUSCULAR/SUBCUTANEOUS (IM/SC) ON DAYS 17-28 AND IN CONSOLI
     Route: 065
  7. IMATINIB [Concomitant]
     Active Substance: IMATINIB
     Indication: Acute lymphocytic leukaemia
     Dosage: INDUCTION PHASE: FROM DAYS 8,  PH-POSITIVE PATIENTS CONTINUED IMATINIB UNTIL ALLOGENEIC HEMATOPOIETI
     Route: 048
  8. CYTARABINE [Concomitant]
     Active Substance: CYTARABINE
     Indication: Acute lymphocytic leukaemia
     Dosage: CONSOLIDATION B (CYCLE 2, 4): IV INFUSION OVER 2 HOURS ON DAYS 1-4 (1000 MG/M2/ DAY ON DAYS 1-4 FOR
     Route: 042
  9. ETOPOSIDE [Concomitant]
     Active Substance: ETOPOSIDE
     Indication: Acute lymphocytic leukaemia
     Dosage: CONSOLIDATION B (CYCLE 2, 4): IV INFUSION OVER 3 HOURS ON DAYS 1-4 (100 MG/M2/DAY ON DAYS 1-4 FOR PA
     Route: 042
  10. METHOTREXATE [Concomitant]
     Active Substance: METHOTREXATE
     Indication: Acute lymphocytic leukaemia
     Dosage: CONSOLIDATION C (CYCLE 3, 5): IV BOLUS, THEN 60 MG/M2/HOUR FOR 36 HOURS ON DAYS 1-2 AND 15-16
     Route: 040
  11. METHOTREXATE [Concomitant]
     Active Substance: METHOTREXATE
     Dosage: MAINTENANCE (FOR 2 YEARS): ON DAYS 1, 8, 15, 22
     Route: 048
  12. LEUCOVORIN [Concomitant]
     Active Substance: LEUCOVORIN
     Indication: Acute lymphocytic leukaemia
     Dosage: CONSOLIDATION C (CYCLE 3, 5): IV EVERY 6 HOURS FOR THREE DOSES, AND THEN ORAL LEUCOVORIN UNTIL THE S
     Route: 042
  13. MERCAPTOPURINE [Concomitant]
     Active Substance: MERCAPTOPURINE
     Indication: Acute lymphocytic leukaemia
     Dosage: MAINTENANCE (FOR 2 YEARS): ON DAYS 1-28
     Route: 048

REACTIONS (7)
  - Anaphylactic reaction [Unknown]
  - Infusion related reaction [Unknown]
  - Non-cardiac chest pain [Unknown]
  - Chills [Unknown]
  - Febrile neutropenia [Unknown]
  - Bacteraemia [Unknown]
  - Pneumonia [Unknown]
